FAERS Safety Report 7558871-6 (Version None)
Quarter: 2011Q2

REPORT INFORMATION
  Report Type: 
  Country: None (occurrence: None)
  Receive Date: 20110525
  Receipt Date: 20110211
  Transmission Date: 20111010
  Serious: No
  Sender: FDA-Public Use
  Company Number: 323341

PATIENT
  Age: 62 Year
  Sex: Female

DRUGS (4)
  1. ASPIRIN [Concomitant]
  2. VICTOZA [Suspect]
     Indication: TYPE 2 DIABETES MELLITUS
     Dosage: 1,8 MG, QD, SUBCUTANEOUS
     Route: 058
     Dates: start: 20101101
  3. CIPRO [Concomitant]
  4. CRESTOR [Concomitant]

REACTIONS (3)
  - VISUAL IMPAIRMENT [None]
  - BACK PAIN [None]
  - ABDOMINAL PAIN UPPER [None]
